FAERS Safety Report 7775801-2 (Version None)
Quarter: 2011Q3

REPORT INFORMATION
  Report Type: 
  Country: None (occurrence: None)
  Receive Date: 20110921
  Receipt Date: 20110907
  Transmission Date: 20111222
  Serious: Yes (Hospitalization)
  Sender: FDA-Public Use
  Company Number: 2011SP042349

PATIENT
  Age: 66 Year
  Sex: Male
  Weight: 102 kg

DRUGS (7)
  1. BISOPROLOL FUMARATE [Concomitant]
  2. NEORECORMON [Concomitant]
  3. BOCEPREVIR (SCH-503034) [Suspect]
     Indication: HEPATITIS C
     Dosage: 800 MG;TID;PO
     Route: 048
     Dates: start: 20110325
  4. VIRAFERONPEG [Suspect]
     Indication: HEPATITIS C
     Dosage: 120 MCG;QW;SC
     Route: 058
     Dates: start: 20110225
  5. REBETOL [Suspect]
     Indication: HEPATITIS C
     Dosage: 800 MG;QD;PO
     Route: 048
     Dates: start: 20110225
  6. COTRIATEC [Concomitant]
  7. AMARYL [Concomitant]

REACTIONS (6)
  - METASTASIS [None]
  - COUGH [None]
  - PYREXIA [None]
  - LUNG NEOPLASM [None]
  - ANAEMIA [None]
  - RETROPERITONEAL LYMPHADENOPATHY [None]
